FAERS Safety Report 21633969 (Version 2)
Quarter: 2022Q4

REPORT INFORMATION
  Report Type: Spontaneous
  Country: CN (occurrence: CN)
  Receive Date: 20221123
  Receipt Date: 20221129
  Transmission Date: 20230113
  Serious: Yes (Hospitalization, Other)
  Sender: FDA-Public Use
  Company Number: CN-Accord-287907

PATIENT
  Age: 54 Year
  Sex: Female

DRUGS (2)
  1. CARBOPLATIN [Suspect]
     Active Substance: CARBOPLATIN
     Indication: Ovarian cancer
     Dosage: AUC-5 MG/ML/MIN, D1, OVER 30 MINUTES
     Dates: start: 201609
  2. DOCETAXEL [Suspect]
     Active Substance: DOCETAXEL
     Indication: Ovarian cancer
     Dosage: INFUSION BY 60 MINUTES, 70 MG/M2?, D1
     Dates: start: 201609

REACTIONS (2)
  - Chronic myelomonocytic leukaemia [Unknown]
  - Leukaemia [Unknown]

NARRATIVE: CASE EVENT DATE: 20200101
